FAERS Safety Report 9612550 (Version 5)
Quarter: 2015Q4

REPORT INFORMATION
  Report Type: Spontaneous
  Country: US (occurrence: US)
  Receive Date: 20131010
  Receipt Date: 20151009
  Transmission Date: 20160305
  Serious: Yes (Death, Hospitalization, Disabling, Other)
  Sender: FDA-Public Use
  Company Number: US-009507513-1310USA004236

PATIENT
  Sex: Female
  Weight: 89.8 kg

DRUGS (4)
  1. BYETTA [Suspect]
     Active Substance: EXENATIDE
     Indication: TYPE 2 DIABETES MELLITUS
     Dosage: 5 MICROGRAM, BID
     Dates: start: 20120118, end: 20130116
  2. JANUVIA [Suspect]
     Active Substance: SITAGLIPTIN PHOSPHATE
     Indication: TYPE 2 DIABETES MELLITUS
     Dosage: 100 MG, QD
     Route: 048
     Dates: start: 20120118, end: 20121216
  3. ZOCOR [Suspect]
     Active Substance: SIMVASTATIN
  4. LISINOPRIL. [Suspect]
     Active Substance: LISINOPRIL

REACTIONS (67)
  - Ulcer [Unknown]
  - Iron deficiency anaemia [Unknown]
  - Hysterectomy [Unknown]
  - Diverticulum [Unknown]
  - Vulvovaginal mycotic infection [Unknown]
  - Leukocytosis [Unknown]
  - Haematemesis [Unknown]
  - Diarrhoea [Unknown]
  - Constipation [Unknown]
  - Spinal osteoarthritis [Unknown]
  - Chronic obstructive pulmonary disease [Not Recovered/Not Resolved]
  - QRS axis abnormal [Unknown]
  - Peripheral vascular disorder [Unknown]
  - Hydrocephalus [Unknown]
  - Urinary tract infection [Unknown]
  - Lung infiltration [Unknown]
  - Urinary tract infection [Unknown]
  - Vomiting [Unknown]
  - Abdominal pain [Unknown]
  - Pancreatectomy [Unknown]
  - Splenectomy [Unknown]
  - Chronic kidney disease [Not Recovered/Not Resolved]
  - Hypercholesterolaemia [Unknown]
  - Chest pain [Unknown]
  - Pollakiuria [Unknown]
  - Urine output decreased [Unknown]
  - Bronchitis [Unknown]
  - Neck surgery [Unknown]
  - Tachycardia [Unknown]
  - Peripheral swelling [Unknown]
  - Nausea [Unknown]
  - Metastases to lung [Unknown]
  - Coronary artery disease [Unknown]
  - Colon adenoma [Unknown]
  - Neuropathy peripheral [Unknown]
  - Hypertriglyceridaemia [Unknown]
  - Gastrointestinal haemorrhage [Unknown]
  - Diverticulitis [Unknown]
  - Neuritis [Unknown]
  - Back pain [Unknown]
  - Adenocarcinoma pancreas [Not Recovered/Not Resolved]
  - Delirium [Recovered/Resolved]
  - Gastritis [Unknown]
  - Pallor [Unknown]
  - Neuropathy peripheral [Unknown]
  - Drug ineffective [Unknown]
  - Death [Fatal]
  - Pancreatitis [Recovering/Resolving]
  - Cardiac failure [Unknown]
  - Pain [Unknown]
  - Osteoarthritis [Unknown]
  - Gastrooesophageal reflux disease [Unknown]
  - Fatigue [Unknown]
  - Depression [Unknown]
  - Hypertensive nephropathy [Unknown]
  - Diabetes mellitus [Unknown]
  - Weight decreased [Unknown]
  - Hypertension [Unknown]
  - Tobacco abuse [Unknown]
  - Diabetes mellitus inadequate control [Unknown]
  - Hyperhidrosis [Unknown]
  - Chest pain [Unknown]
  - Coronary artery stenosis [Unknown]
  - Wrist surgery [Unknown]
  - Trigger finger [Unknown]
  - Asthma [Unknown]
  - Headache [Unknown]

NARRATIVE: CASE EVENT DATE: 20120117
